FAERS Safety Report 6770520-3 (Version None)
Quarter: 2010Q2

REPORT INFORMATION
  Report Type: 
  Country: None (occurrence: None)
  Receive Date: 20100610
  Receipt Date: 20100602
  Transmission Date: 20101027
  Serious: Yes (Hospitalization, Disabling)
  Sender: FDA-Public Use
  Company Number: 2010SP006325

PATIENT
  Age: 29 Year
  Sex: Female
  Weight: 53.978 kg

DRUGS (5)
  1. NUVARING [Suspect]
     Indication: CONTRACEPTION
     Dosage: VAG
     Route: 067
     Dates: start: 20070306, end: 20070704
  2. VALTREX [Concomitant]
  3. TRAMADOL HYDROCHLORIDE AND ACETAMINOPHEN [Concomitant]
  4. VENTOLIN [Concomitant]
  5. FIORICET [Concomitant]

REACTIONS (17)
  - ANTITHROMBIN III DECREASED [None]
  - ANXIETY [None]
  - ASTHMA [None]
  - CEREBRAL HAEMORRHAGE [None]
  - CEREBRAL INFARCTION [None]
  - COAGULATION FACTOR VIII LEVEL INCREASED [None]
  - GRAND MAL CONVULSION [None]
  - HYPERCOAGULATION [None]
  - INTERNATIONAL NORMALISED RATIO FLUCTUATION [None]
  - MIGRAINE [None]
  - PANIC ATTACK [None]
  - PARTIAL SEIZURES [None]
  - PNEUMONIA [None]
  - PNEUMONIA ASPIRATION [None]
  - PROTEIN C DECREASED [None]
  - TRANSVERSE SINUS THROMBOSIS [None]
  - VOCAL CORD PARALYSIS [None]
